FAERS Safety Report 9638222 (Version 1)
Quarter: 2013Q4

REPORT INFORMATION
  Report Type: Spontaneous
  Country: US (occurrence: US)
  Receive Date: 20131022
  Receipt Date: 20131022
  Transmission Date: 20140711
  Serious: No
  Sender: FDA-Public Use
  Company Number: US-PFIZER INC-2013300472

PATIENT
  Age: 71 Year
  Sex: Female
  Weight: 104.31 kg

DRUGS (2)
  1. LYRICA [Suspect]
     Indication: FIBROMYALGIA
     Dosage: 75 MG, 2X/DAY
     Route: 048
  2. FLEXERIL [Concomitant]
     Dosage: UNK

REACTIONS (2)
  - Hallucination [Unknown]
  - Drug ineffective [Unknown]
